FAERS Safety Report 4642217-7 (Version None)
Quarter: 2005Q2

REPORT INFORMATION
  Report Type: 
  Country: None (occurrence: None)
  Receive Date: 20050420
  Receipt Date: 20050404
  Transmission Date: 20051028
  Serious: Yes (Hospitalization)
  Sender: FDA-Public Use
  Company Number: DSA_26235_2005

PATIENT
  Age: 55 Year
  Sex: Male

DRUGS (3)
  1. TAVOR [Suspect]
     Dosage: 30 MG ONCE PO
     Route: 048
     Dates: start: 20050330, end: 20050330
  2. LORAZEPAM [Suspect]
     Dosage: 30 MG ONCE
     Dates: start: 20050330, end: 20050330
  3. TAVOR [Suspect]
     Dosage: VAR UNK PO
     Route: 048

REACTIONS (5)
  - ABDOMINAL PAIN UPPER [None]
  - DRUG ABUSER [None]
  - INTENTIONAL MISUSE [None]
  - NAUSEA [None]
  - TACHYCARDIA [None]
